FAERS Safety Report 14779827 (Version 2)
Quarter: 2018Q3

REPORT INFORMATION
  Report Type: Spontaneous
  Country: US (occurrence: US)
  Receive Date: 20180419
  Receipt Date: 20180710
  Transmission Date: 20181010
  Serious: No
  Sender: FDA-Public Use
  Company Number: US-BAUSCH-BL-2017-025518

PATIENT
  Sex: Female

DRUGS (1)
  1. MINOCYCLINE [Suspect]
     Active Substance: MINOCYCLINE\MINOCYCLINE HYDROCHLORIDE
     Indication: SKIN DISORDER
     Dosage: WHITE/GRAY CAPSULES OF (UNKNOWN MANUFACTURER)
     Route: 048

REACTIONS (3)
  - Oral pain [Unknown]
  - Rash [Unknown]
  - Plicated tongue [Unknown]
